FAERS Safety Report 8029877-8 (Version None)
Quarter: 2012Q1

REPORT INFORMATION
  Report Type: 
  Country: None (occurrence: None)
  Receive Date: 20120106
  Receipt Date: 20120106
  Transmission Date: 20120608
  Serious: No
  Sender: FDA-Public Use
  Company Number: None

PATIENT
  Age: 44 Year
  Sex: Female
  Weight: 82.1011 kg

DRUGS (9)
  1. DENOSUMAB [Concomitant]
  2. ALOXI [Concomitant]
  3. EMEND [Concomitant]
  4. TAXOTERE [Suspect]
     Indication: BREAST CANCER
     Dosage: 135MG Q 3 WKS IVSS
     Route: 042
     Dates: start: 20110901
  5. TAXOTERE [Suspect]
     Indication: BREAST CANCER
     Dosage: 135MG Q 3 WKS IVSS
     Route: 042
     Dates: start: 20110922
  6. TAXOTERE [Suspect]
     Indication: BREAST CANCER
     Dosage: 135MG Q 3 WKS IVSS
     Route: 042
     Dates: start: 20111013
  7. TAXOTERE [Suspect]
     Indication: BREAST CANCER
     Dosage: 135MG Q 3 WKS IVSS
     Route: 042
     Dates: start: 20120103
  8. TAXOTERE [Suspect]
     Indication: BREAST CANCER
     Dosage: 135MG Q 3 WKS IVSS
     Route: 042
     Dates: start: 20110811
  9. DECADRON [Concomitant]

REACTIONS (3)
  - FLUSHING [None]
  - ERYTHEMA [None]
  - HOT FLUSH [None]
